FAERS Safety Report 7346855-2 (Version None)
Quarter: 2011Q1

REPORT INFORMATION
  Report Type: 
  Country: None (occurrence: None)
  Receive Date: 20110311
  Receipt Date: 20110228
  Transmission Date: 20110831
  Serious: Yes (Other)
  Sender: FDA-Public Use
  Company Number: GR-SANOFI-AVENTIS-2011SA012537

PATIENT
  Age: 70 Year
  Sex: Female

DRUGS (4)
  1. FLUOROURACIL [Suspect]
     Indication: RECTAL CANCER METASTATIC
  2. BEVACIZUMAB [Concomitant]
     Indication: RECTAL CANCER METASTATIC
  3. FOLINIC ACID [Concomitant]
     Indication: RECTAL CANCER METASTATIC
  4. OXALIPLATIN [Suspect]
     Indication: RECTAL CANCER METASTATIC

REACTIONS (5)
  - NAUSEA [None]
  - VOMITING [None]
  - HYPERAMMONAEMIC ENCEPHALOPATHY [None]
  - CONFUSIONAL STATE [None]
  - DISORIENTATION [None]
